FAERS Safety Report 24835128 (Version 1)
Quarter: 2025Q1

REPORT INFORMATION
  Report Type: Spontaneous
  Country: US (occurrence: US)
  Receive Date: 20250113
  Receipt Date: 20250113
  Transmission Date: 20250408
  Serious: Yes (Hospitalization)
  Sender: EMCURE PHARMACEUTICALS LTD
  Company Number: US-AVET LIFESCIENCES LTD-2025-AVET-000005

PATIENT
  Sex: Male

DRUGS (3)
  1. ALPRAZOLAM [Suspect]
     Active Substance: ALPRAZOLAM
  2. MIDOMAFETAMINE [Suspect]
     Active Substance: MIDOMAFETAMINE
  3. LORAZEPAM [Suspect]
     Active Substance: LORAZEPAM

REACTIONS (2)
  - Suicide attempt [Unknown]
  - Suicidal ideation [Recovering/Resolving]
